FAERS Safety Report 11283272 (Version 2)
Quarter: 2016Q2

REPORT INFORMATION
  Report Type: Report from Study
  Country: US (occurrence: US)
  Receive Date: 20150720
  Receipt Date: 20160624
  Transmission Date: 20160815
  Serious: Yes (Hospitalization, Other)
  Sender: FDA-Public Use
  Company Number: US-ACTELION-A-US2015-118065

PATIENT
  Age: 54 Year
  Sex: Male

DRUGS (6)
  1. ADCIRCA [Concomitant]
     Active Substance: TADALAFIL
     Dosage: 20 MG, 2 TABS BID
     Dates: start: 2010
  2. PANTOPRAZOLE [Concomitant]
     Active Substance: PANTOPRAZOLE SODIUM
     Dosage: 40 MG, UNK
     Dates: start: 2015
  3. BUMETANIDE. [Concomitant]
     Active Substance: BUMETANIDE
     Dosage: 2 MG, UNK
     Dates: start: 2016
  4. EPLERENONE. [Concomitant]
     Active Substance: EPLERENONE
     Dosage: 2-5 MG, PRN
     Dates: start: 2015
  5. OPSUMIT [Suspect]
     Active Substance: MACITENTAN
     Indication: PULMONARY HYPERTENSION
     Dosage: 10 MG, QD
     Route: 048
     Dates: start: 20140108
  6. METOLAZONE. [Concomitant]
     Active Substance: METOLAZONE
     Dosage: 2-5 MG, PRN
     Dates: start: 2014

REACTIONS (18)
  - Dyspnoea [Unknown]
  - Cardiac valve disease [Unknown]
  - Balance disorder [Unknown]
  - Fall [Unknown]
  - Oedema [Unknown]
  - Macrocytosis [Recovered/Resolved]
  - Hyponatraemia [Recovered/Resolved]
  - Blood sodium decreased [Recovered/Resolved]
  - Oedema peripheral [Unknown]
  - Condition aggravated [Unknown]
  - Alcohol poisoning [Recovered/Resolved]
  - Hypokalaemia [Recovered/Resolved]
  - Right ventricular failure [Recovered/Resolved]
  - Contusion [Unknown]
  - Myocardial oedema [Unknown]
  - Chest injury [Unknown]
  - Head injury [Unknown]
  - Cardiac failure congestive [Recovered/Resolved]

NARRATIVE: CASE EVENT DATE: 20150512
